FAERS Safety Report 7246765-5 (Version None)
Quarter: 2011Q1

REPORT INFORMATION
  Report Type: 
  Country: None (occurrence: None)
  Receive Date: 20110127
  Receipt Date: 20110124
  Transmission Date: 20110831
  Serious: Yes (Death, Hospitalization)
  Sender: FDA-Public Use
  Company Number: JP-BAYER-201012769BYL

PATIENT
  Sex: Female
  Weight: 41.1 kg

DRUGS (18)
  1. FERROUS CITRATE [Concomitant]
     Dosage: 200 MG, QD
     Route: 048
     Dates: start: 20100529, end: 20100603
  2. NEXAVAR [Suspect]
     Indication: HEPATIC NEOPLASM MALIGNANT
     Dosage: 600 MG, QD
     Route: 048
     Dates: start: 20100528, end: 20100603
  3. FESIN [Concomitant]
     Dosage: 40 MG, QD
     Route: 042
     Dates: start: 20100521, end: 20100521
  4. FESIN [Concomitant]
     Dosage: 40 MG, QD
     Route: 042
     Dates: start: 20100524, end: 20100524
  5. WARFARIN [Concomitant]
     Dosage: 3.7 MG, QD
     Route: 048
     Dates: end: 20100923
  6. PRAVASTATIN [Concomitant]
     Dosage: 10 MG, QD
     Route: 048
  7. UNCODEABLE ^UNKNOWN MANUFACTURER^ [Concomitant]
     Dosage: 100 MG, QD
     Dates: start: 20100903, end: 20100916
  8. NEXAVAR [Suspect]
     Dosage: 400 MG, QD
     Route: 048
     Dates: start: 20100604, end: 20100722
  9. RADEN [Concomitant]
     Dosage: 300 MG, QD
     Route: 048
  10. FOSAMAC [Concomitant]
     Dosage: 5 MG, QD
     Route: 048
  11. PEGASYS [Concomitant]
     Dosage: 90 ?G, Q2WK
     Route: 058
     Dates: start: 20100903, end: 20100917
  12. URSO 250 [Concomitant]
     Dosage: 400 MG, QD
     Route: 048
  13. PEGASYS [Concomitant]
     Indication: HEPATIC NEOPLASM MALIGNANT
     Dosage: 90 ?G, Q2WK
     Route: 058
     Dates: start: 20100703, end: 20100820
  14. ADALAT CC [Concomitant]
     Dosage: 20 MG, QD
     Route: 048
  15. ZANTAC [Concomitant]
     Dosage: 300 MG, QD
     Route: 048
     Dates: start: 20100604, end: 20100923
  16. ACTARIT [Concomitant]
     Dosage: 300 MG, QD
     Route: 048
     Dates: start: 20010821
  17. UNCODEABLE ^UNKNOWN MANUFACTURER^ [Concomitant]
     Indication: HEPATIC NEOPLASM MALIGNANT
     Dosage: 100 MG, QD
     Dates: start: 20100703, end: 20100812
  18. FESIN [Concomitant]
     Dosage: 40 MG, QD
     Route: 042
     Dates: start: 20100528, end: 20100528

REACTIONS (5)
  - DECREASED APPETITE [None]
  - HEPATIC FAILURE [None]
  - ASPARTATE AMINOTRANSFERASE INCREASED [None]
  - HEPATIC FUNCTION ABNORMAL [None]
  - FATIGUE [None]
